FAERS Safety Report 11878965 (Version 1)
Quarter: 2015Q4

REPORT INFORMATION
  Report Type: Report from Study
  Country: PL (occurrence: PL)
  Receive Date: 20151230
  Receipt Date: 20151230
  Transmission Date: 20160305
  Serious: Yes (Hospitalization, Other)
  Sender: FDA-Public Use
  Company Number: PHHY2015PL166910

PATIENT
  Age: 76 Year
  Sex: Male

DRUGS (5)
  1. DASATINIB [Suspect]
     Active Substance: DASATINIB
     Indication: CHRONIC MYELOID LEUKAEMIA
     Dosage: 100 MG, QD
     Route: 065
     Dates: start: 201210
  2. DASATINIB [Suspect]
     Active Substance: DASATINIB
     Dosage: 50 MG, QD
     Route: 065
     Dates: start: 201406
  3. GLIVEC [Suspect]
     Active Substance: IMATINIB MESYLATE
     Indication: CHRONIC MYELOID LEUKAEMIA
     Dosage: 400 MG, QD
     Route: 065
     Dates: start: 201111, end: 201208
  4. DASATINIB [Suspect]
     Active Substance: DASATINIB
     Dosage: 80 MG, UNK
     Route: 065
     Dates: start: 201306
  5. DASATINIB [Suspect]
     Active Substance: DASATINIB
     Dosage: 80 MG, QOD
     Route: 065
     Dates: start: 201311, end: 201406

REACTIONS (6)
  - Dyspnoea [Recovered/Resolved]
  - Pruritus [Unknown]
  - Diarrhoea [Unknown]
  - Muscle spasms [Unknown]
  - Ejection fraction decreased [Unknown]
  - Skin disorder [Unknown]

NARRATIVE: CASE EVENT DATE: 201304
